FAERS Safety Report 25740115 (Version 1)
Quarter: 2025Q3

REPORT INFORMATION
  Report Type: Report from Study
  Country: US (occurrence: US)
  Receive Date: 20250829
  Receipt Date: 20250829
  Transmission Date: 20251021
  Serious: Yes (Other)
  Sender: ALEXION PHARMACEUTICALS
  Company Number: US-AstraZeneca-CH-00937841A

PATIENT
  Sex: Female

DRUGS (1)
  1. SOLIRIS [Suspect]
     Active Substance: ECULIZUMAB
     Indication: Myasthenia gravis

REACTIONS (6)
  - Neuropathy peripheral [Unknown]
  - Autoimmune disorder [Unknown]
  - Illness [Unknown]
  - Depression [Unknown]
  - Stress [Unknown]
  - Asthenia [Unknown]
